FAERS Safety Report 23783750 (Version 1)
Quarter: 2024Q2

REPORT INFORMATION
  Report Type: Spontaneous
  Country: CN (occurrence: CN)
  Receive Date: 20240425
  Receipt Date: 20240425
  Transmission Date: 20240715
  Serious: Yes (Other)
  Sender: FDA-Public Use
  Company Number: CN-PFIZER INC-PV202400052854

PATIENT
  Age: 69 Year
  Sex: Female
  Weight: 60 kg

DRUGS (2)
  1. SOLU-MEDROL [Suspect]
     Active Substance: METHYLPREDNISOLONE SODIUM SUCCINATE
     Indication: Systemic inflammatory response syndrome
     Dosage: 40 MG, 2X/DAY
     Route: 041
     Dates: start: 20240405, end: 20240409
  2. MOXIFLOXACIN HYDROCHLORIDE [Suspect]
     Active Substance: MOXIFLOXACIN HYDROCHLORIDE\MOXIFLOXACIN HYDROCHLORIDE MONOHYDRATE
     Indication: Infection
     Dosage: 0.4 G, 1X/DAY
     Route: 041
     Dates: start: 20240405, end: 20240409

REACTIONS (3)
  - Delirium [Unknown]
  - Dysphoria [Unknown]
  - Disorganised speech [Unknown]

NARRATIVE: CASE EVENT DATE: 20240409
